FAERS Safety Report 18129793 (Version 1)
Quarter: 2020Q3

REPORT INFORMATION
  Report Type: Spontaneous
  Country: US (occurrence: US)
  Receive Date: 20200810
  Receipt Date: 20200810
  Transmission Date: 20201103
  Serious: No
  Sender: FDA-Public Use
  Company Number: None

PATIENT
  Age: 66 Year
  Sex: Female
  Weight: 81.9 kg

DRUGS (8)
  1. LOSARTAN. [Concomitant]
     Active Substance: LOSARTAN
  2. VITAMIN C [Concomitant]
     Active Substance: ASCORBIC ACID
  3. VIT D [Concomitant]
     Active Substance: VITAMIN D NOS
  4. VIT B [Concomitant]
     Active Substance: VITAMIN B
  5. DULOXETINE HCL DR 30 MG CAPSULES [Suspect]
     Active Substance: DULOXETINE HYDROCHLORIDE
     Indication: DEPRESSION
     Dosage: ?          QUANTITY:1 CAPSULE(S);?
     Route: 048
     Dates: start: 20200729, end: 20200807
  6. DAILY VITAMIN [Concomitant]
     Active Substance: VITAMINS
  7. ADDERALL [Concomitant]
     Active Substance: AMPHETAMINE ASPARTATE\AMPHETAMINE SULFATE\DEXTROAMPHETAMINE SACCHARATE\DEXTROAMPHETAMINE SULFATE
  8. VENLAFAXINE HCL [Concomitant]
     Active Substance: VENLAFAXINE HYDROCHLORIDE

REACTIONS (4)
  - Vertigo [None]
  - Vomiting [None]
  - Dizziness [None]
  - Malaise [None]

NARRATIVE: CASE EVENT DATE: 20200807
